FAERS Safety Report 12518914 (Version 1)
Quarter: 2016Q2

REPORT INFORMATION
  Report Type: Spontaneous
  Country: US (occurrence: US)
  Receive Date: 20160630
  Receipt Date: 20160630
  Transmission Date: 20160815
  Serious: Yes (Death, Other)
  Sender: FDA-Public Use
  Company Number: PHHY2016US086346

PATIENT
  Sex: Male

DRUGS (8)
  1. OXYTOCIN. [Suspect]
     Active Substance: OXYTOCIN
     Indication: FOETAL EXPOSURE DURING PREGNANCY
     Route: 064
  2. CIMETIDINE [Suspect]
     Active Substance: CIMETIDINE
     Indication: FOETAL EXPOSURE DURING PREGNANCY
     Route: 064
  3. SCOPOLAMINE SANDOZ [Suspect]
     Active Substance: SCOPOLAMINE
     Indication: FOETAL EXPOSURE DURING PREGNANCY
     Route: 064
  4. QUININE [Suspect]
     Active Substance: QUININE
     Indication: FOETAL EXPOSURE DURING PREGNANCY
     Route: 064
  5. DIAZEPAM. [Suspect]
     Active Substance: DIAZEPAM
     Indication: FOETAL EXPOSURE DURING PREGNANCY
     Route: 064
  6. CEFIXIME. [Suspect]
     Active Substance: CEFIXIME
     Indication: FOETAL EXPOSURE DURING PREGNANCY
     Route: 064
  7. ARTEMETHER+LUMEFANTRINE [Suspect]
     Active Substance: ARTEMETHER\LUMEFANTRINE
     Indication: FOETAL EXPOSURE DURING PREGNANCY
     Route: 064
  8. AMPICILLIN SANDOZ [Suspect]
     Active Substance: AMPICILLIN
     Indication: FOETAL EXPOSURE DURING PREGNANCY
     Route: 064

REACTIONS (11)
  - Pyrexia [Unknown]
  - Ebola disease [Unknown]
  - Coma [Unknown]
  - Haematochezia [Unknown]
  - Respiratory distress [Unknown]
  - Foetal exposure during pregnancy [Unknown]
  - Exposure during breast feeding [None]
  - Death [Fatal]
  - Vertical infection transmission [None]
  - Haematemesis [Unknown]
  - Neonatal respiratory distress syndrome [None]
